FAERS Safety Report 8295621-2 (Version None)
Quarter: 2012Q2

REPORT INFORMATION
  Report Type: 
  Country: None (occurrence: None)
  Receive Date: 20120418
  Receipt Date: 20120416
  Transmission Date: 20120825
  Serious: Yes (Death, Other)
  Sender: FDA-Public Use
  Company Number: PHHO2012US005954

PATIENT
  Sex: Male
  Weight: 69.4 kg

DRUGS (15)
  1. AFINITOR [Suspect]
     Indication: OESOPHAGEAL CARCINOMA
     Dosage: 10 MG, QD
     Route: 048
     Dates: start: 20111229, end: 20120220
  2. ASPIRIN [Concomitant]
     Dosage: 81 MG, QD
     Route: 048
  3. VALTREX [Concomitant]
     Dosage: 1000 MG, BID
     Route: 048
  4. VERAPAMIL [Concomitant]
     Dosage: 240 MG, QD
     Route: 048
  5. CARAFATE [Concomitant]
     Dosage: 1 G, QID
     Route: 048
  6. MYLANTA [Concomitant]
     Dosage: 1 SWIG, PRN
     Route: 048
  7. SANCOS [Concomitant]
     Dosage: 3.1/24 HOURS, QD
     Route: 062
  8. LOVENOX [Concomitant]
     Dosage: 20-120 MG, QD
     Route: 048
  9. NEXIUM [Concomitant]
     Dosage: 40 MG, QD
     Route: 048
  10. NASONEX [Concomitant]
     Dosage: 4 SPRAYS, PRN
     Route: 062
  11. QVAR 40 [Concomitant]
     Dosage: 160 MCG, PRN
     Route: 062
  12. ZOFRAN [Concomitant]
     Dosage: 8 MG, PRN
     Route: 048
  13. AVAPRO [Concomitant]
     Dosage: 150 MG, QD
     Route: 048
  14. KEFLEX [Concomitant]
     Dosage: 500 MG, BID
     Route: 048
  15. IRON [Concomitant]
     Dosage: 240 MG, UNK
     Route: 048

REACTIONS (3)
  - CARDIOPULMONARY FAILURE [None]
  - RESPIRATORY FAILURE [None]
  - RESPIRATORY DISTRESS [None]
